FAERS Safety Report 16538521 (Version 1)
Quarter: 2019Q3

REPORT INFORMATION
  Report Type: Spontaneous
  Country: US (occurrence: US)
  Receive Date: 20190708
  Receipt Date: 20190708
  Transmission Date: 20191004
  Serious: Yes (Hospitalization, Other)
  Sender: FDA-Public Use
  Company Number: US-ASTRAZENECA-2019SE94703

PATIENT
  Sex: Female

DRUGS (10)
  1. LYRICA [Suspect]
     Active Substance: PREGABALIN
     Indication: FIBROMYALGIA
     Route: 048
     Dates: start: 2012
  2. LEVETIRACETAM. [Concomitant]
     Active Substance: LEVETIRACETAM
  3. BUTALBITAL, CAFFEINE, PARACETAMOL [Concomitant]
     Dosage: 50/325/40MG PER TABLET
  4. ZYRTEC [Concomitant]
     Active Substance: CETIRIZINE HYDROCHLORIDE
  5. SYMBICORT [Suspect]
     Active Substance: BUDESONIDE\FORMOTEROL FUMARATE DIHYDRATE
     Indication: PULMONARY FIBROSIS
     Dosage: 160/4.5 120 INHALATION TWO PUFFS IN THE MORNING AND NIGHT
     Route: 055
  6. PRIMIDONE. [Concomitant]
     Active Substance: PRIMIDONE
     Indication: SEIZURE
     Route: 048
  7. ESCITALOPRAM [Concomitant]
     Active Substance: ESCITALOPRAM OXALATE
  8. MYCOPHENOLATE SODIUM [Concomitant]
     Active Substance: MYCOPHENOLATE SODIUM
  9. PLAQUENIL [Concomitant]
     Active Substance: HYDROXYCHLOROQUINE SULFATE
  10. MELATONIN [Concomitant]
     Active Substance: MELATONIN

REACTIONS (10)
  - Joint dislocation [Unknown]
  - Fibromyalgia [Unknown]
  - Respiratory failure [Recovered/Resolved]
  - Paraesthesia [Unknown]
  - Somnolence [Not Recovered/Not Resolved]
  - Body height decreased [Unknown]
  - Pneumonia [Unknown]
  - Pain in extremity [Unknown]
  - Product use issue [Not Recovered/Not Resolved]
  - Influenza [Unknown]

NARRATIVE: CASE EVENT DATE: 2014
